FAERS Safety Report 7607428-7 (Version None)
Quarter: 2011Q3

REPORT INFORMATION
  Report Type: 
  Country: None (occurrence: None)
  Receive Date: 20110713
  Receipt Date: 20110628
  Transmission Date: 20111222
  Serious: Yes (Hospitalization)
  Sender: FDA-Public Use
  Company Number: GB-BAYER-2011-057455

PATIENT
  Age: 75 Year
  Sex: Female

DRUGS (11)
  1. HYPROMELLOSE [Concomitant]
  2. FUROSEMIDE [Concomitant]
  3. IBUPROFEN [Concomitant]
  4. SIMVASTATIN [Concomitant]
  5. NAPROXEN SODIUM [Suspect]
  6. QUININE SULFATE [Concomitant]
  7. SODIUM BICARBONATE [Concomitant]
  8. ACETYLSALICYLIC ACID SRT [Suspect]
     Dosage: 75 MG, QD
  9. ALGESAL [DIETHYLAMINE SALICYLATE] [Concomitant]
  10. OMEPRAZOLE [Concomitant]
  11. VALSARTAN [Concomitant]

REACTIONS (1)
  - HAEMATEMESIS [None]
